FAERS Safety Report 5970303-8 (Version None)
Quarter: 2008Q4

REPORT INFORMATION
  Report Type: 
  Country: None (occurrence: None)
  Receive Date: 20081126
  Receipt Date: 20081020
  Transmission Date: 20090506
  Serious: No
  Sender: FDA-Public Use
  Company Number: US-ABBOTT-08P-163-0482794-00

PATIENT
  Sex: Female
  Weight: 111.23 kg

DRUGS (18)
  1. SIMCOR [Suspect]
     Indication: BLOOD CHOLESTEROL INCREASED
     Route: 048
     Dates: start: 20080501, end: 20080801
  2. SIMCOR [Suspect]
     Route: 048
     Dates: start: 20080801
  3. ACETYLSALICYLIC ACID SRT [Concomitant]
     Indication: CARDIAC DISORDER
     Route: 048
  4. FUROSEMIDE [Concomitant]
     Indication: DRUG USE FOR UNKNOWN INDICATION
     Route: 048
  5. ESOMEPRAZOLE MAGNESIUM [Concomitant]
     Indication: GASTRIC DISORDER
     Route: 048
  6. RENEXA [Concomitant]
     Indication: DYSPNOEA
     Route: 048
  7. RENEXA [Concomitant]
     Indication: CARDIAC DISORDER
  8. METFORMIN HCL [Concomitant]
     Indication: DIABETES MELLITUS
     Route: 048
  9. CONJUGATED ESTROGENS [Concomitant]
     Indication: HORMONE REPLACEMENT THERAPY
     Route: 048
  10. MYCARDIS [Concomitant]
     Indication: HYPERTENSION
     Route: 048
  11. JENUVIA [Concomitant]
     Indication: DIABETES MELLITUS
  12. METOPROLOL TARTRATE [Concomitant]
     Indication: HYPERTENSION
     Route: 048
  13. THIOCTIC ACID [Concomitant]
     Indication: CARDIAC DISORDER
     Route: 048
  14. FLAX SEED [Concomitant]
     Indication: ROUTINE HEALTH MAINTENANCE
     Route: 048
  15. FISH OIL [Concomitant]
     Indication: ROUTINE HEALTH MAINTENANCE
     Route: 048
  16. M.V.I. [Concomitant]
     Indication: ROUTINE HEALTH MAINTENANCE
     Route: 048
  17. CALCIUM-SANDOZ [Concomitant]
     Indication: ROUTINE HEALTH MAINTENANCE
     Route: 048
  18. ERGOCALCIFEROL [Concomitant]
     Indication: ROUTINE HEALTH MAINTENANCE
     Route: 048

REACTIONS (1)
  - FLUSHING [None]
